FAERS Safety Report 18158937 (Version 1)
Quarter: 2020Q3

REPORT INFORMATION
  Report Type: Spontaneous
  Country: NL (occurrence: NL)
  Receive Date: 20200817
  Receipt Date: 20200817
  Transmission Date: 20201103
  Serious: Yes (Other)
  Sender: FDA-Public Use
  Company Number: NL-PFIZER INC-2020312527

PATIENT
  Sex: Male

DRUGS (5)
  1. XARELTO [Concomitant]
     Active Substance: RIVAROXABAN
     Dosage: 20 MG
  2. TOLTERODINE TARTRATE. [Suspect]
     Active Substance: TOLTERODINE TARTRATE
     Indication: URGE INCONTINENCE
     Dosage: 4 MG, 1X/DAY
     Dates: start: 20200723
  3. OMECAT [Concomitant]
     Active Substance: OMEPRAZOLE
     Dosage: 10 MG
  4. VALSARTAN. [Concomitant]
     Active Substance: VALSARTAN
     Dosage: 80 MG
  5. METOPROLOL SUCCINATE. [Concomitant]
     Active Substance: METOPROLOL SUCCINATE
     Dosage: 100 MG

REACTIONS (1)
  - Hypertension [Not Recovered/Not Resolved]
